FAERS Safety Report 7474848-3 (Version None)
Quarter: 2011Q2

REPORT INFORMATION
  Report Type: 
  Country: None (occurrence: None)
  Receive Date: 20110512
  Receipt Date: 20110404
  Transmission Date: 20111010
  Serious: Yes (Hospitalization, Other)
  Sender: FDA-Public Use
  Company Number: US-BAYER-201039959NA

PATIENT
  Age: 19 Year
  Sex: Female
  Weight: 91 kg

DRUGS (1)
  1. YAZ [Suspect]
     Indication: CONTRACEPTION
     Dosage: UNK
     Route: 048
     Dates: start: 20081016, end: 20090801

REACTIONS (4)
  - PAIN [None]
  - CHOLELITHIASIS [None]
  - CHOLECYSTITIS [None]
  - GALLBLADDER DISORDER [None]
